FAERS Safety Report 11544215 (Version 1)
Quarter: 2015Q3

REPORT INFORMATION
  Report Type: Spontaneous
  Country: US (occurrence: None)
  Receive Date: 20150923
  Receipt Date: 20150923
  Transmission Date: 20151125
  Serious: Yes (Hospitalization)
  Sender: FDA-Public Use
  Company Number: None

PATIENT
  Age: 76 Year
  Sex: Male
  Weight: 87.1 kg

DRUGS (18)
  1. POLYETHYLENE GLYCOL [Concomitant]
     Active Substance: POLYETHYLENE GLYCOLS
  2. FUROSEMIDE. [Concomitant]
     Active Substance: FUROSEMIDE
  3. LOPERAMIDE [Concomitant]
     Active Substance: LOPERAMIDE
  4. TAMSULOSIN [Concomitant]
     Active Substance: TAMSULOSIN
  5. TOLTERODINE ER [Concomitant]
  6. RUXOLITINIB 5MG TABS [Suspect]
     Active Substance: RUXOLITINIB
     Indication: ACUTE MYELOID LEUKAEMIA
     Route: 048
     Dates: start: 20150616, end: 20150713
  7. ALBUTEROL. [Concomitant]
     Active Substance: ALBUTEROL
  8. CELECOXIB. [Concomitant]
     Active Substance: CELECOXIB
  9. MULTIVITAMIN (FOR HIM) [Concomitant]
  10. POTASSIUM CHLORIDE. [Concomitant]
     Active Substance: POTASSIUM CHLORIDE
  11. SERTRALINE [Concomitant]
     Active Substance: SERTRALINE HYDROCHLORIDE
  12. SIMVASTATIN. [Concomitant]
     Active Substance: SIMVASTATIN
  13. ALLOPURINOL. [Concomitant]
     Active Substance: ALLOPURINOL
  14. FINASTERIDE. [Concomitant]
     Active Substance: FINASTERIDE
  15. ACETAMINOPHEN. [Concomitant]
     Active Substance: ACETAMINOPHEN
  16. FLUTICASONE [Concomitant]
     Active Substance: FLUTICASONE\FLUTICASONE PROPIONATE
  17. HYDROMORPHONE [Concomitant]
     Active Substance: HYDROMORPHONE
  18. VITAMIN B12-FOLIC ACID [Concomitant]

REACTIONS (4)
  - Muscular weakness [None]
  - Radiculopathy [None]
  - Musculoskeletal pain [None]
  - Neck pain [None]

NARRATIVE: CASE EVENT DATE: 20150713
